FAERS Safety Report 18971187 (Version 2)
Quarter: 2021Q1

REPORT INFORMATION
  Report Type: Spontaneous
  Country: CO (occurrence: CO)
  Receive Date: 20210305
  Receipt Date: 20210322
  Transmission Date: 20210420
  Serious: Yes (Life-Threatening, Hospitalization, Other)
  Sender: FDA-Public Use
  Company Number: CO-LUPIN PHARMACEUTICALS INC.-2021-02739

PATIENT
  Age: 16 Year
  Sex: Male

DRUGS (2)
  1. ACETAMINOPHEN. [Suspect]
     Active Substance: ACETAMINOPHEN
     Indication: PAIN MANAGEMENT
     Dosage: 4 DOSAGE FORM
     Route: 048
  2. AMLODIPINE [Suspect]
     Active Substance: AMLODIPINE BESYLATE
     Indication: PAIN MANAGEMENT
     Dosage: 6 DOSAGE FORM
     Route: 048

REACTIONS (10)
  - Pyrexia [Recovering/Resolving]
  - Vomiting [Recovering/Resolving]
  - Accidental overdose [Unknown]
  - Abdominal pain [Recovering/Resolving]
  - Non-cardiogenic pulmonary oedema [Recovering/Resolving]
  - Myocardial depression [Recovering/Resolving]
  - Chest pain [Recovering/Resolving]
  - Intentional product misuse [Unknown]
  - Toxicity to various agents [Unknown]
  - Hypotension [Recovering/Resolving]
